FAERS Safety Report 26207941 (Version 1)
Quarter: 2025Q4

REPORT INFORMATION
  Report Type: Spontaneous
  Country: EU (occurrence: None)
  Receive Date: 20251229
  Receipt Date: 20251229
  Transmission Date: 20260118
  Serious: Yes (Other)
  Sender: ENDO
  Company Number: EU-ENDO USA, INC.-2025-002411

PATIENT
  Sex: Male

DRUGS (5)
  1. EDEX [Suspect]
     Active Substance: ALPROSTADIL
     Indication: Product used for unknown indication
     Dosage: 10 MICROGRAM, TWICE A WEEK
  2. EDEX [Suspect]
     Active Substance: ALPROSTADIL
  3. EDEX [Suspect]
     Active Substance: ALPROSTADIL
  4. EDEX [Suspect]
     Active Substance: ALPROSTADIL
  5. DEVICE [Suspect]
     Active Substance: DEVICE
     Indication: Product used for unknown indication
     Dosage: UNK UNKNOWN, UNKNOWN

REACTIONS (2)
  - Prostatectomy [Recovered/Resolved]
  - Prostatic disorder [Unknown]

NARRATIVE: CASE EVENT DATE: 20250101
